FAERS Safety Report 4647577-9 (Version None)
Quarter: 2005Q2

REPORT INFORMATION
  Report Type: 
  Country: None (occurrence: None)
  Receive Date: 20050426
  Receipt Date: 20050420
  Transmission Date: 20051028
  Serious: Yes (Hospitalization)
  Sender: FDA-Public Use
  Company Number: UKP05000137

PATIENT
  Age: 32 Year
  Sex: Male

DRUGS (1)
  1. DANTRIUM [Suspect]
     Indication: MUSCLE SPASMS
     Dosage: ORAL
     Route: 048

REACTIONS (2)
  - CONFUSIONAL STATE [None]
  - HALLUCINATION [None]
